FAERS Safety Report 21655902 (Version 1)
Quarter: 2022Q4

REPORT INFORMATION
  Report Type: Spontaneous
  Country: KR (occurrence: KR)
  Receive Date: 20221129
  Receipt Date: 20221129
  Transmission Date: 20230113
  Serious: Yes (Death)
  Sender: FDA-Public Use
  Company Number: KR-STRIDES ARCOLAB LIMITED-2022SP015925

PATIENT
  Age: 68 Year
  Sex: Female

DRUGS (8)
  1. DEXAMETHASONE [Suspect]
     Active Substance: DEXAMETHASONE
     Indication: Haemophagocytic lymphohistiocytosis
     Dosage: 20 MILLIGRAM/DAY
     Route: 065
  2. DEXAMETHASONE [Suspect]
     Active Substance: DEXAMETHASONE
     Dosage: UNK (FIVE DAYS AFTER TOCILIZUMAB, SHE RECEIVED RESCUE REGIMEN WITH HLH-2004 REGIMEN INCLUDING DEXAME
     Route: 065
  3. METHOTREXATE [Suspect]
     Active Substance: METHOTREXATE
     Indication: Haemophagocytic lymphohistiocytosis
     Dosage: UNK (FIVE DAYS AFTER TOCILIZUMAB, SHE RECEIVED RESCUE REGIMEN WITH HLH-2004 REGIMEN INCLUDING DEXAME
     Route: 065
  4. ETOPOSIDE [Suspect]
     Active Substance: ETOPOSIDE
     Indication: Haemophagocytic lymphohistiocytosis
     Dosage: UNK (FIVE DAYS AFTER TOCILIZUMAB, SHE RECEIVED RESCUE REGIMEN WITH HLH-2004 REGIMEN INCLUDING DEXAME
     Route: 065
  5. PREDNISOLONE [Suspect]
     Active Substance: PREDNISOLONE
     Indication: Haemophagocytic lymphohistiocytosis
     Dosage: UNK (FIVE DAYS AFTER TOCILIZUMAB, SHE RECEIVED RESCUE REGIMEN WITH HLH-2004 REGIMEN INCLUDING DEXAME
     Route: 065
  6. CYCLOSPORINE [Suspect]
     Active Substance: CYCLOSPORINE
     Indication: Haemophagocytic lymphohistiocytosis
     Dosage: UNK (FIVE DAYS AFTER TOCILIZUMAB, SHE RECEIVED RESCUE REGIMEN WITH HLH-2004 REGIMEN INCLUDING DEXAME
     Route: 065
  7. TOCILIZUMAB [Suspect]
     Active Substance: TOCILIZUMAB
     Indication: Haemophagocytic lymphohistiocytosis
     Dosage: 8 MILLIGRAM/KILOGRAM, SINGLE
     Route: 065
  8. COTRIMOXAZOLE [Suspect]
     Active Substance: SULFAMETHOXAZOLE\TRIMETHOPRIM
     Indication: Haemophagocytic lymphohistiocytosis
     Dosage: UNK  (FIVE DAYS AFTER TOCILIZUMAB, SHE RECEIVED RESCUE REGIMEN WITH HLH-2004 REGIMEN INCLUDING DEXAM
     Route: 065

REACTIONS (2)
  - Drug ineffective [Fatal]
  - Septic shock [Fatal]
